FAERS Safety Report 23790681 (Version 1)
Quarter: 2024Q2

REPORT INFORMATION
  Report Type: Spontaneous
  Country: SE (occurrence: SE)
  Receive Date: 20240427
  Receipt Date: 20240427
  Transmission Date: 20240716
  Serious: Yes (Hospitalization)
  Sender: FDA-Public Use
  Company Number: None

PATIENT
  Age: 82 Year
  Sex: Female

DRUGS (6)
  1. OBINUTUZUMAB [Suspect]
     Active Substance: OBINUTUZUMAB
     Indication: Chronic lymphocytic leukaemia
     Dosage: COURSE 1, DAY 1
     Route: 042
     Dates: start: 20240320
  2. ACETAMINOPHEN [Concomitant]
     Active Substance: ACETAMINOPHEN
  3. PREDNISOLONE [Concomitant]
     Active Substance: PREDNISOLONE
  4. LEVOTHYROXINE SODIUM [Concomitant]
     Active Substance: LEVOTHYROXINE SODIUM
  5. SODIUM CHLORIDE [Concomitant]
     Active Substance: SODIUM CHLORIDE
     Dates: start: 20240320
  6. LEUKERAN [Concomitant]
     Active Substance: CHLORAMBUCIL

REACTIONS (10)
  - Vomiting [Unknown]
  - Loss of consciousness [Unknown]
  - Nausea [Unknown]
  - Haemoglobin decreased [Unknown]
  - Flushing [Unknown]
  - Blood pressure decreased [Unknown]
  - Feeling hot [Unknown]
  - Ventricular tachycardia [Unknown]
  - Acute myocardial infarction [Unknown]
  - Diarrhoea [Unknown]

NARRATIVE: CASE EVENT DATE: 20240320
